FAERS Safety Report 12222115 (Version 2)
Quarter: 2016Q2

REPORT INFORMATION
  Report Type: Spontaneous
  Country: US (occurrence: US)
  Receive Date: 20160330
  Receipt Date: 20160511
  Transmission Date: 20160815
  Serious: No
  Sender: FDA-Public Use
  Company Number: US-PFIZER INC-2016155412

PATIENT
  Age: 55 Year
  Sex: Female
  Weight: 64.41 kg

DRUGS (3)
  1. METFORMIN [Concomitant]
     Active Substance: METFORMIN HYDROCHLORIDE
  2. INVOKANA [Concomitant]
     Active Substance: CANAGLIFLOZIN
  3. LYRICA [Suspect]
     Active Substance: PREGABALIN
     Dosage: 75 CAPSULE TWICE DAILY
     Route: 048
     Dates: start: 20160307

REACTIONS (2)
  - Weight increased [Not Recovered/Not Resolved]
  - Eating disorder [Not Recovered/Not Resolved]

NARRATIVE: CASE EVENT DATE: 201603
